FAERS Safety Report 13782983 (Version 1)
Quarter: 2017Q3

REPORT INFORMATION
  Report Type: Spontaneous
  Country: US (occurrence: US)
  Receive Date: 20170724
  Receipt Date: 20170724
  Transmission Date: 20171127
  Serious: No
  Sender: FDA-Public Use
  Company Number: US-GLAXOSMITHKLINE-US2017109534

PATIENT
  Sex: Female

DRUGS (1)
  1. ABREVA [Suspect]
     Active Substance: DOCOSANOL
     Indication: ORAL HERPES
     Dosage: UNK, USED THE PRODUCT MORE THAN FIVE TIMES PER DAY
     Dates: start: 20170705, end: 20170713

REACTIONS (2)
  - Inappropriate schedule of drug administration [Unknown]
  - Incorrect drug administration duration [Unknown]
